FAERS Safety Report 12364699 (Version 2)
Quarter: 2016Q2

REPORT INFORMATION
  Report Type: Report from Study
  Country: CA (occurrence: CA)
  Receive Date: 20160513
  Receipt Date: 20160530
  Transmission Date: 20160815
  Serious: Yes (Other)
  Sender: FDA-Public Use
  Company Number: CA-JNJFOC-20160506850

PATIENT
  Age: 16 Year
  Sex: Male
  Weight: 68.04 kg

DRUGS (1)
  1. REMICADE [Suspect]
     Active Substance: INFLIXIMAB
     Indication: CROHN^S DISEASE
     Route: 042
     Dates: start: 200911

REACTIONS (8)
  - Chapped lips [Unknown]
  - Dry skin [Unknown]
  - Product use issue [Unknown]
  - Influenza like illness [Unknown]
  - Pharyngitis streptococcal [Recovered/Resolved]
  - Colitis [Unknown]
  - Drug dose omission [Unknown]
  - Off label use [Unknown]

NARRATIVE: CASE EVENT DATE: 200911
